APPROVED DRUG PRODUCT: ABILIFY
Active Ingredient: ARIPIPRAZOLE
Strength: 15MG **Federal Register determination that product was not discontinued or withdrawn for safety or effectiveness reasons**
Dosage Form/Route: TABLET, ORALLY DISINTEGRATING;ORAL
Application: N021729 | Product #003
Applicant: OTSUKA PHARMACEUTICAL CO LTD
Approved: Jun 7, 2006 | RLD: Yes | RS: No | Type: DISCN

PATENTS:
Patent 8759350 | Expires: Mar 2, 2027
Patent 9125939 | Expires: Jul 28, 2026